FAERS Safety Report 6347605-9 (Version None)
Quarter: 2009Q3

REPORT INFORMATION
  Report Type: 
  Country: None (occurrence: None)
  Receive Date: 20090910
  Receipt Date: 20090903
  Transmission Date: 20100115
  Serious: Yes (Hospitalization)
  Sender: FDA-Public Use
  Company Number: FR-ABBOTT-09P-056-0595575-00

PATIENT
  Sex: Male
  Weight: 50 kg

DRUGS (8)
  1. KALETRA [Suspect]
     Indication: HIV INFECTION
     Route: 048
     Dates: start: 20090601, end: 20090820
  2. KALETRA [Suspect]
     Route: 048
     Dates: start: 20090715, end: 20090820
  3. KIVEXA [Suspect]
     Indication: HIV INFECTION
     Route: 048
     Dates: start: 20090715, end: 20090820
  4. CONTRAMAL [Concomitant]
     Indication: DRUG USE FOR UNKNOWN INDICATION
  5. INTEXIUM [Concomitant]
     Indication: DRUG USE FOR UNKNOWN INDICATION
  6. WELLVONE [Concomitant]
     Indication: DRUG USE FOR UNKNOWN INDICATION
  7. SUSTIVA [Concomitant]
     Indication: HIV INFECTION
     Dates: start: 20090201, end: 20090701
  8. LAMIVUDINE [Concomitant]
     Indication: HIV INFECTION

REACTIONS (3)
  - GAMMA-GLUTAMYLTRANSFERASE INCREASED [None]
  - MITOCHONDRIAL CYTOPATHY [None]
  - PANCREATITIS ACUTE [None]
